FAERS Safety Report 5638289-3 (Version None)
Quarter: 2008Q1

REPORT INFORMATION
  Report Type: 
  Country: None (occurrence: None)
  Receive Date: 20080226
  Receipt Date: 20080226
  Transmission Date: 20080703
  Serious: Yes (Other)
  Sender: FDA-Public Use
  Company Number: None

PATIENT
  Age: 81 Year
  Sex: Male
  Weight: 73.9 kg

DRUGS (1)
  1. HEPARIN [Suspect]
     Indication: CORONARY ARTERY BYPASS
     Dosage: ONCE IV
     Route: 042
     Dates: start: 20080214, end: 20080214

REACTIONS (1)
  - BLOOD PRESSURE DECREASED [None]
